FAERS Safety Report 23896833 (Version 3)
Quarter: 2024Q4

REPORT INFORMATION
  Report Type: Spontaneous
  Country: CA (occurrence: CA)
  Receive Date: 20240524
  Receipt Date: 20241028
  Transmission Date: 20250114
  Serious: Yes (Death, Hospitalization, Other)
  Sender: RANBAXY
  Company Number: CA-SUN PHARMACEUTICAL INDUSTRIES LTD-2024R1-447855

PATIENT
  Age: 6 Month
  Sex: Female

DRUGS (2)
  1. ALBUTEROL [Suspect]
     Active Substance: ALBUTEROL
     Indication: Pearson^s syndrome
     Dosage: 0.5 MILLIGRAM, TID
     Route: 048
  2. ALBUTEROL [Suspect]
     Active Substance: ALBUTEROL
     Indication: Congenital myasthenic syndrome

REACTIONS (5)
  - Cardio-respiratory arrest [Fatal]
  - Condition aggravated [Fatal]
  - Nephrotic syndrome [Fatal]
  - Pneumonia aspiration [Fatal]
  - Treatment failure [Fatal]
